FAERS Safety Report 13895643 (Version 1)
Quarter: 2017Q3

REPORT INFORMATION
  Report Type: Spontaneous
  Country: US (occurrence: US)
  Receive Date: 20170820
  Receipt Date: 20170820
  Transmission Date: 20171127
  Serious: Yes (Other)
  Sender: FDA-Public Use
  Company Number: None

PATIENT
  Sex: Female
  Weight: 70.2 kg

DRUGS (14)
  1. METRONIDAZOLE. [Concomitant]
     Active Substance: METRONIDAZOLE
  2. AMBIEN [Concomitant]
     Active Substance: ZOLPIDEM TARTRATE
  3. FLOVENT HFA [Concomitant]
     Active Substance: FLUTICASONE PROPIONATE
  4. VITAMIN C [Concomitant]
     Active Substance: ASCORBIC ACID
  5. CALCIUM [Concomitant]
     Active Substance: CALCIUM
  6. ATIVAN [Concomitant]
     Active Substance: LORAZEPAM
  7. WELLBUTRIN [Concomitant]
     Active Substance: BUPROPION HYDROCHLORIDE
  8. DIGESTIVE ADVANTAGE PROBIOTIC [Concomitant]
  9. OMEPRAZOL [Concomitant]
     Active Substance: OMEPRAZOLE
  10. CEPHALEXIN. [Suspect]
     Active Substance: CEPHALEXIN
     Indication: URINARY TRACT INFECTION
     Dosage: ?          QUANTITY:1 CAPSULE(S);?EVERY 6 HOURS ORAL
     Route: 048
     Dates: start: 20170802, end: 20170809
  11. VITAMIN D [Concomitant]
     Active Substance: CHOLECALCIFEROL
  12. GABAPENTIN. [Concomitant]
     Active Substance: GABAPENTIN
  13. EFFEXOR [Concomitant]
     Active Substance: VENLAFAXINE HYDROCHLORIDE
  14. CENTRUM SILVER FOR WOMEN [Concomitant]
     Active Substance: MINERALS\VITAMINS

REACTIONS (8)
  - Dyspepsia [None]
  - Dehydration [None]
  - Nausea [None]
  - Vomiting [None]
  - Abdominal pain upper [None]
  - Pyrexia [None]
  - Clostridium difficile infection [None]
  - Diarrhoea [None]

NARRATIVE: CASE EVENT DATE: 20170813
